FAERS Safety Report 7553954-9 (Version None)
Quarter: 2011Q2

REPORT INFORMATION
  Report Type: 
  Country: None (occurrence: None)
  Receive Date: 20110614
  Receipt Date: 20110614
  Transmission Date: 20111010
  Serious: Yes (Hospitalization)
  Sender: FDA-Public Use
  Company Number: None

PATIENT
  Age: 68 Year
  Sex: Male

DRUGS (2)
  1. SULFAMETHOXAZOLE [Suspect]
     Indication: ERYTHEMA
     Dates: start: 20110429, end: 20110430
  2. SULFAMETHOXAZOLE [Suspect]
     Indication: LIMB INJURY
     Dates: start: 20110429, end: 20110430

REACTIONS (1)
  - URTICARIA [None]
